FAERS Safety Report 4858527-4 (Version None)
Quarter: 2005Q4

REPORT INFORMATION
  Report Type: 
  Country: None (occurrence: None)
  Receive Date: 20051219
  Receipt Date: 20051207
  Transmission Date: 20060501
  Serious: Yes (Life-Threatening, Hospitalization)
  Sender: FDA-Public Use
  Company Number: JP-JNJFOC-20050900771

PATIENT
  Sex: Female
  Weight: 45 kg

DRUGS (21)
  1. REMICADE [Suspect]
     Route: 042
  2. REMICADE [Suspect]
     Route: 042
  3. REMICADE [Suspect]
     Route: 042
  4. REMICADE [Suspect]
     Indication: RHEUMATOID ARTHRITIS
     Route: 042
  5. RHEUMATREX [Suspect]
     Route: 048
  6. RHEUMATREX [Suspect]
     Indication: RHEUMATOID ARTHRITIS
     Route: 048
  7. ADRENAL HORMONE PREPARATIONS [Concomitant]
     Indication: RHEUMATOID ARTHRITIS
  8. SOLU-MEDROL [Concomitant]
     Indication: PREMEDICATION
     Route: 042
  9. NEO-MINOPHAGEN-C [Concomitant]
     Indication: PREMEDICATION
     Route: 042
  10. REMICUT [Concomitant]
     Indication: PREMEDICATION
     Route: 048
  11. SELOKEN [Concomitant]
     Indication: ARRHYTHMIA
     Route: 048
  12. ISONIAZID [Concomitant]
     Indication: ANTIBIOTIC PROPHYLAXIS
     Route: 048
  13. PREDONINE [Concomitant]
     Indication: RHEUMATOID ARTHRITIS
     Route: 048
  14. VOLTAREN [Concomitant]
     Indication: RHEUMATOID ARTHRITIS
     Route: 048
  15. COLCHICINE [Concomitant]
     Route: 048
  16. OMEPRAL [Concomitant]
     Route: 048
  17. PENTASA [Concomitant]
     Route: 048
  18. BENET [Concomitant]
     Route: 048
  19. ULCERMIN [Concomitant]
     Route: 048
  20. LOPEMIN [Concomitant]
     Route: 048
  21. SOSEGON [Concomitant]
     Route: 048

REACTIONS (4)
  - CARDIAC ARREST [None]
  - DRUG ADMINISTRATION ERROR [None]
  - URTICARIA [None]
  - VENTRICULAR FIBRILLATION [None]
